FAERS Safety Report 6747172-1 (Version None)
Quarter: 2010Q2

REPORT INFORMATION
  Report Type: 
  Country: None (occurrence: None)
  Receive Date: 20100528
  Receipt Date: 20100519
  Transmission Date: 20101027
  Serious: Yes (Other)
  Sender: FDA-Public Use
  Company Number: SE-JNJFOC-20100209065

PATIENT
  Age: 17 Year
  Sex: Female

DRUGS (6)
  1. REMICADE [Suspect]
     Indication: CROHN'S DISEASE
     Dosage: LATE AUTUMN 2009 FREQUENCY CHANGED TO EVERY 6-7 WEEKS
     Route: 042
  2. REMICADE [Suspect]
     Route: 042
  3. CIPROFLOXACIN [Concomitant]
  4. METOJECT [Concomitant]
  5. SYMBICORT FORTE [Concomitant]
     Route: 055
  6. BRICANYL [Concomitant]
     Route: 065

REACTIONS (3)
  - DRUG EFFECT DECREASED [None]
  - PSORIASIS [None]
  - PUSTULAR PSORIASIS [None]
